FAERS Safety Report 4960164-8 (Version None)
Quarter: 2006Q1

REPORT INFORMATION
  Report Type: 
  Country: None (occurrence: None)
  Receive Date: 20060331
  Receipt Date: 20051128
  Transmission Date: 20060701
  Serious: Yes (Death)
  Sender: FDA-Public Use
  Company Number: TR-ABBOTT-05P-161-0318460-00

PATIENT
  Age: 60 Year
  Sex: Male
  Weight: 85 kg

DRUGS (1)
  1. KLACID MR TABLETS [Suspect]
     Indication: PNEUMONIA
     Route: 048
     Dates: start: 20050929

REACTIONS (2)
  - MYOCARDIAL INFARCTION [None]
  - NAUSEA [None]
